FAERS Safety Report 5514032-3 (Version None)
Quarter: 2007Q4

REPORT INFORMATION
  Report Type: 
  Country: None (occurrence: None)
  Receive Date: 20071109
  Receipt Date: 20071109
  Transmission Date: 20080405
  Serious: No
  Sender: FDA-Public Use
  Company Number: None

PATIENT
  Age: 21 Year
  Sex: Female

DRUGS (1)
  1. DEMEROL [Suspect]
     Indication: ABDOMINAL PAIN
     Dosage: 25MG ONCE IV
     Route: 042

REACTIONS (2)
  - INJECTION SITE ERYTHEMA [None]
  - INJECTION SITE URTICARIA [None]
